FAERS Safety Report 9147594 (Version 1)
Quarter: 2013Q1

REPORT INFORMATION
  Report Type: Spontaneous
  Country: US (occurrence: US)
  Receive Date: 20130307
  Receipt Date: 20130307
  Transmission Date: 20140127
  Serious: Yes (Hospitalization, Other)
  Sender: FDA-Public Use
  Company Number: US-BAXTER-2013BAX006579

PATIENT
  Age: 76 None
  Sex: Male

DRUGS (2)
  1. DIANEAL LOW CALCIUM [Suspect]
     Indication: PERITONEAL DIALYSIS
     Route: 033
  2. DIANEAL LOW CALCIUM [Suspect]
     Indication: PERITONEAL DIALYSIS
     Route: 033

REACTIONS (6)
  - Scrotal swelling [Unknown]
  - Inguinal hernia [Unknown]
  - Umbilical hernia [Unknown]
  - Peritoneal disorder [Unknown]
  - Fluid overload [Not Recovered/Not Resolved]
  - Constipation [Unknown]
